FAERS Safety Report 4299465-8 (Version None)
Quarter: 2004Q1

REPORT INFORMATION
  Report Type: 
  Country: None (occurrence: None)
  Receive Date: 20040219
  Receipt Date: 20031231
  Transmission Date: 20041129
  Serious: Yes (Hospitalization)
  Sender: FDA-Public Use
  Company Number: US-GLAXOSMITHKLINE-A0490909A

PATIENT
  Age: 6 Year
  Sex: Female

DRUGS (3)
  1. LAMICTAL [Suspect]
     Indication: CONVULSION
     Dosage: 115MG TWICE PER DAY
     Route: 050
  2. FELBATOL [Suspect]
     Indication: CONVULSION
     Dosage: 1020MG PER DAY
     Route: 050
     Dates: start: 20030901
  3. TOPAMAX [Concomitant]
     Indication: CONVULSION
     Dosage: 175MG PER DAY
     Route: 050

REACTIONS (2)
  - CRYING [None]
  - DRUG INTERACTION [None]
